FAERS Safety Report 20047314 (Version 6)
Quarter: 2022Q1

REPORT INFORMATION
  Report Type: Spontaneous
  Country: CA (occurrence: CA)
  Receive Date: 20211109
  Receipt Date: 20220216
  Transmission Date: 20220423
  Serious: Yes (Other)
  Sender: FDA-Public Use
  Company Number: CA-CELLTRION INC.-2021CA014961

PATIENT

DRUGS (6)
  1. INFLECTRA [Suspect]
     Active Substance: INFLIXIMAB-DYYB
     Indication: Takayasu^s arteritis
     Dosage: 470 MG, 0, 2 , 6 WEEKS DOSE THEN EVERY 8 WEEKSSTARTED IN HOSPITAL
     Route: 042
     Dates: start: 202103, end: 20211029
  2. INFLECTRA [Suspect]
     Active Substance: INFLIXIMAB-DYYB
     Dosage: 1 DF
     Dates: start: 20210830
  3. INFLECTRA [Suspect]
     Active Substance: INFLIXIMAB-DYYB
     Dosage: 470 MG, 0, 2 , 6 WEEKS DOSE THEN EVERY 8 WEEKS, STARTED IN HOSPITAL
     Route: 042
     Dates: start: 20211029
  4. INFLECTRA [Suspect]
     Active Substance: INFLIXIMAB-DYYB
     Dosage: 6 MG/KG, EVERY 4 WEEKS
     Route: 042
  5. INFLECTRA [Suspect]
     Active Substance: INFLIXIMAB-DYYB
     Dosage: 6 MG/KG EVERY 4 WEEKS
     Route: 042
     Dates: start: 20211130
  6. INFLECTRA [Suspect]
     Active Substance: INFLIXIMAB-DYYB
     Dosage: 6 MG/KG EVERY 4 WEEKS
     Route: 042
     Dates: start: 20211229

REACTIONS (11)
  - Weight increased [Unknown]
  - Diabetes mellitus inadequate control [Unknown]
  - Inflammation [Not Recovered/Not Resolved]
  - Chills [Unknown]
  - Flushing [Unknown]
  - Hot flush [Unknown]
  - Pruritus [Recovered/Resolved]
  - Acne [Recovered/Resolved]
  - Pharyngeal paraesthesia [Recovered/Resolved]
  - Off label use [Unknown]
  - Off label use [Unknown]

NARRATIVE: CASE EVENT DATE: 20210101
